FAERS Safety Report 7930809-9 (Version None)
Quarter: 2011Q4

REPORT INFORMATION
  Report Type: 
  Country: None (occurrence: None)
  Receive Date: 20111121
  Receipt Date: 20111114
  Transmission Date: 20120403
  Serious: Yes (Other)
  Sender: FDA-Public Use
  Company Number: JP-GLAXOSMITHKLINE-B0763445A

PATIENT

DRUGS (2)
  1. FLUTICASONE PROPIONATE [Suspect]
     Indication: PRODUCT USED FOR UNKNOWN INDICATION
     Route: 055
  2. RITONAVIR [Suspect]
     Route: 048

REACTIONS (2)
  - CUSHING'S SYNDROME [None]
  - THORACIC VERTEBRAL FRACTURE [None]
